FAERS Safety Report 5211023-7 (Version None)
Quarter: 2006Q4

REPORT INFORMATION
  Report Type: 
  Country: None (occurrence: None)
  Receive Date: 20061114
  Receipt Date: 20060810
  Transmission Date: 20070319
  Serious: No
  Sender: FDA-Public Use
  Company Number: S06-USA-03213-01

PATIENT
  Age: 66 Year
  Sex: Male
  Weight: 72.1219 kg

DRUGS (4)
  1. NAMENDA [Suspect]
     Indication: DEMENTIA ALZHEIMER'S TYPE
     Dosage: 5 MG BID PO
     Route: 048
     Dates: start: 20060626, end: 20060703
  2. VASOTEC [Concomitant]
  3. CERETOLIN [Concomitant]
  4. AMBIEN [Concomitant]

REACTIONS (3)
  - CONFUSIONAL STATE [None]
  - CRYING [None]
  - DEPRESSION [None]
